FAERS Safety Report 5755133-4 (Version None)
Quarter: 2008Q2

REPORT INFORMATION
  Report Type: 
  Country: None (occurrence: None)
  Receive Date: 20080602
  Receipt Date: 20080519
  Transmission Date: 20081010
  Serious: Yes (Hospitalization)
  Sender: FDA-Public Use
  Company Number: US-JNJFOC-20080103065

PATIENT
  Sex: Female
  Weight: 91.63 kg

DRUGS (11)
  1. PREZISTA [Suspect]
     Route: 048
  2. PREZISTA [Suspect]
     Indication: HIV INFECTION
     Route: 048
  3. NORVIR [Suspect]
     Indication: HIV INFECTION
     Route: 048
  4. TRUVADA [Suspect]
     Indication: HIV INFECTION
     Route: 048
  5. CYMBALTA [Concomitant]
     Indication: DEPRESSION
     Dosage: STARTED PRE TRIAL
     Route: 048
  6. MULTI-VITAMIN [Concomitant]
     Indication: MEDICAL DIET
     Dosage: STARTED PRE TRIAL
     Route: 065
  7. ORTHO-NOVUM [Concomitant]
     Indication: CONTRACEPTION
     Dosage: STARTED PRE TRIAL
     Route: 048
  8. HYOSCYAMINE SULFATE [Concomitant]
     Indication: DRUG USE FOR UNKNOWN INDICATION
     Route: 048
  9. ECHINACEA [Concomitant]
  10. CEPHALEXIN [Concomitant]
     Route: 048
  11. IRON [Concomitant]
     Route: 048

REACTIONS (1)
  - ANAEMIA [None]
